FAERS Safety Report 5206748-3 (Version None)
Quarter: 2007Q1

REPORT INFORMATION
  Report Type: 
  Country: None (occurrence: None)
  Receive Date: 20070108
  Receipt Date: 20061229
  Transmission Date: 20070707
  Serious: Yes (Death)
  Sender: FDA-Public Use
  Company Number: HQWYE126102JAN07

PATIENT
  Age: 85 Year
  Sex: Female

DRUGS (1)
  1. AMIODARONE (AMIODARONE, UNSPEC) [Suspect]
     Indication: CARDIAC DISORDER
     Dosage: ^LOW DOSE^ - EXACT DAILY DOES NOT SPECIFIED

REACTIONS (2)
  - ARTERIAL STENOSIS [None]
  - LUNG DISORDER [None]
